FAERS Safety Report 9700147 (Version 1)
Quarter: 2013Q4

REPORT INFORMATION
  Report Type: Spontaneous
  Country: US (occurrence: None)
  Receive Date: 20131107
  Receipt Date: 20131107
  Transmission Date: 20140711
  Serious: Yes (Hospitalization)
  Sender: FDA-Public Use
  Company Number: 2013038763

PATIENT
  Age: 82 Year
  Sex: Male
  Weight: 72.58 kg

DRUGS (15)
  1. HIZENTRA (IMMUNOGLOBULIN HUMAN NORMAL) [Suspect]
     Indication: IMMUNODEFICIENCY COMMON VARIABLE
     Dosage: (IN TOTAL 11 G OF HIZENTRA EVERY WEEK SUBCUTANEOUS)
     Route: 058
     Dates: start: 20130916
  2. DIPHENHYDRAMINE (DIPHENHYDRAMINE) [Concomitant]
  3. EPI-PEN (EPINEPHRINE HYDROCHLORIDE) [Concomitant]
  4. LMX (LIDOCAINE) [Concomitant]
  5. SIMVASTATIN (SIMVASTATIN) [Concomitant]
  6. ATIVAN (LORAZEPAM) [Concomitant]
  7. RANITIDINE (RANITIDINE) [Concomitant]
  8. DEXILANT (ALL OTHER THERAPEUTIC PRODUCTS) [Concomitant]
  9. LORAZEPAM (LORAZEPAM) [Concomitant]
  10. METOPROLOL SUCCINATE (METHOPROLOL SUCCINATE) [Concomitant]
  11. IPRATROPIUM BROMIDE (IPRATROPIUM BROMIDE) [Concomitant]
  12. XARELTO (ALL OTHER THERAPEUTIC PRODUCTS) [Concomitant]
  13. SODIUM CHLORIDE [Concomitant]
  14. MULTIVITAMIN (DAILY MULTIVITAMIN) [Concomitant]
  15. BROVANA (ALL OTHER THERAPEUTIC PRODUCTS) [Concomitant]

REACTIONS (2)
  - Dehydration [None]
  - Food poisoning [None]
